FAERS Safety Report 24526080 (Version 2)
Quarter: 2024Q4

REPORT INFORMATION
  Report Type: Report from Study
  Country: GB (occurrence: GB)
  Receive Date: 20241021
  Receipt Date: 20241212
  Transmission Date: 20250114
  Serious: Yes (Hospitalization)
  Sender: AMGEN
  Company Number: GB-AMGEN-GBRSL2024166446

PATIENT
  Age: 75 Year
  Sex: Female

DRUGS (2)
  1. ADALIMUMAB [Suspect]
     Active Substance: ADALIMUMAB
     Indication: Rheumatoid arthritis
     Dosage: 40 MILLIGRAM, Q2WK
     Route: 065
  2. ABATACEPT [Concomitant]
     Active Substance: ABATACEPT

REACTIONS (3)
  - Adverse drug reaction [Unknown]
  - Pneumonia [Unknown]
  - Viral infection [Unknown]
